FAERS Safety Report 9689222 (Version 1)
Quarter: 2013Q4

REPORT INFORMATION
  Report Type: Report from Study
  Country: US (occurrence: US)
  Receive Date: 20131114
  Receipt Date: 20131114
  Transmission Date: 20140711
  Serious: Yes (Other)
  Sender: FDA-Public Use
  Company Number: PHEH2013US023764

PATIENT
  Age: 41 Year
  Sex: Female
  Weight: 95.24 kg

DRUGS (2)
  1. GILENYA [Suspect]
     Indication: MULTIPLE SCLEROSIS
     Dosage: 1 DF, QD
     Route: 048
     Dates: start: 20111230
  2. SOLUMEDROL [Concomitant]

REACTIONS (2)
  - Central nervous system lesion [Unknown]
  - Muscle twitching [Recovering/Resolving]
